FAERS Safety Report 8427279-3 (Version None)
Quarter: 2012Q2

REPORT INFORMATION
  Report Type: 
  Country: None (occurrence: None)
  Receive Date: 20120611
  Receipt Date: 20120602
  Transmission Date: 20120825
  Serious: Yes (Disabling)
  Sender: FDA-Public Use
  Company Number: PT-GLAXOSMITHKLINE-B0794160A

PATIENT
  Sex: Female
  Weight: 68 kg

DRUGS (8)
  1. AMOXICILLIN TRIHYDRATE [Suspect]
     Indication: INFLUENZA
     Dosage: 1000MG TWICE PER DAY
     Route: 048
     Dates: start: 20120308, end: 20120313
  2. OLCADIL [Concomitant]
     Indication: INSOMNIA
     Dosage: 2MG PER DAY
     Route: 048
     Dates: start: 20020101
  3. FLUTICASONE PROPIONATE [Suspect]
     Indication: INFLUENZA
     Route: 048
     Dates: start: 20120308, end: 20120311
  4. GINKGO BILOBA [Concomitant]
     Dosage: 40MG PER DAY
     Route: 048
     Dates: start: 20090101
  5. MODURETIC 5-50 [Concomitant]
     Indication: ATRIAL FIBRILLATION
     Route: 048
     Dates: start: 20050101
  6. VARFINE [Concomitant]
     Indication: ATRIAL FIBRILLATION
     Dosage: 7.5MG PER DAY
     Route: 048
     Dates: start: 20050101
  7. LANOXIN [Concomitant]
     Indication: ATRIAL FIBRILLATION
     Dosage: .25MG FOUR TIMES PER WEEK
     Route: 048
     Dates: start: 20050101
  8. CRESTOR [Concomitant]
     Indication: HYPERCHOLESTEROLAEMIA
     Dosage: 5MG PER DAY
     Route: 048
     Dates: start: 20070101

REACTIONS (3)
  - DYSPHAGIA [None]
  - PHARYNGEAL INFLAMMATION [None]
  - PALPITATIONS [None]
